FAERS Safety Report 7972494 (Version 4)
Quarter: 2014Q2

REPORT INFORMATION
  Report Type: Spontaneous
  Country: US (occurrence: US)
  Receive Date: 20110603
  Receipt Date: 20140428
  Transmission Date: 20141212
  Serious: Yes (Hospitalization, Other)
  Sender: FDA-Public Use
  Company Number: US-BAYER-2010-002078

PATIENT
  Age: 28 Year
  Sex: Female
  Weight: 79.37 kg

DRUGS (4)
  1. YASMIN [Suspect]
     Dosage: UNK
     Dates: start: 200608, end: 200811
  2. YASMIN [Suspect]
     Dosage: UNK
  3. OCELLA [Suspect]
     Dosage: UNK
     Dates: start: 200608, end: 200811
  4. CEPHALEXIN [Concomitant]
     Dosage: 500 MG, TID
     Route: 048
     Dates: start: 20081104

REACTIONS (3)
  - Gallbladder injury [None]
  - Deep vein thrombosis [None]
  - Cholecystitis acute [None]
